FAERS Safety Report 4856255-2 (Version None)
Quarter: 2005Q4

REPORT INFORMATION
  Report Type: 
  Country: None (occurrence: None)
  Receive Date: 20051215
  Receipt Date: 20051215
  Transmission Date: 20060501
  Serious: Yes (Other)
  Sender: FDA-Public Use
  Company Number: None

PATIENT
  Sex: Female
  Weight: 68.4932 kg

DRUGS (2)
  1. NARDIL [Suspect]
     Indication: AGITATION
     Dosage: 1 TABLET 3 TIMES DAILY
  2. NARDIL [Suspect]
     Indication: DRUG DEPENDENCE
     Dosage: 1 TABLET 3 TIMES DAILY

REACTIONS (1)
  - DEPRESSION [None]
